FAERS Safety Report 6905705-6 (Version None)
Quarter: 2010Q3

REPORT INFORMATION
  Report Type: 
  Country: None (occurrence: None)
  Receive Date: 20100802
  Receipt Date: 20100719
  Transmission Date: 20110219
  Serious: Yes (Hospitalization, Other)
  Sender: FDA-Public Use
  Company Number: 2010P1000417

PATIENT
  Age: 26 Year
  Sex: Male

DRUGS (3)
  1. AMPHETAMINE SALTS TABLETS 5MG [Suspect]
     Indication: ATTENTION DEFICIT/HYPERACTIVITY DISORDER
     Dosage: 20 MG; TID; PO
     Route: 048
  2. LISDEXAMFETAMINE [Suspect]
     Indication: ATTENTION DEFICIT/HYPERACTIVITY DISORDER
     Dosage: 90 MG; QD;
  3. METHYLPHENIDATE [Suspect]
     Indication: ATTENTION DEFICIT/HYPERACTIVITY DISORDER
     Dosage: 36 MG; QD;

REACTIONS (6)
  - EMOTIONAL DISORDER [None]
  - INAPPROPRIATE SCHEDULE OF DRUG ADMINISTRATION [None]
  - IRRITABILITY [None]
  - TREATMENT NONCOMPLIANCE [None]
  - TRICHOTILLOMANIA [None]
  - WRONG DRUG ADMINISTERED [None]
